FAERS Safety Report 6793065-3 (Version None)
Quarter: 2010Q2

REPORT INFORMATION
  Report Type: 
  Country: None (occurrence: None)
  Receive Date: 20100624
  Receipt Date: 20081105
  Transmission Date: 20101027
  Serious: No
  Sender: FDA-Public Use
  Company Number: US-PFIZER INC-2008094588

PATIENT
  Sex: Female
  Weight: 122.47 kg

DRUGS (2)
  1. DIFLUCAN [Suspect]
     Indication: FUNGAL INFECTION
     Route: 048
  2. BACTRIM [Concomitant]

REACTIONS (2)
  - BACK PAIN [None]
  - PYREXIA [None]
